FAERS Safety Report 18256842 (Version 1)
Quarter: 2020Q3

REPORT INFORMATION
  Report Type: Spontaneous
  Country: US (occurrence: US)
  Receive Date: 20200910
  Receipt Date: 20200910
  Transmission Date: 20201103
  Serious: No
  Sender: FDA-Public Use
  Company Number: None

PATIENT
  Age: 59 Year
  Sex: Female
  Weight: 47.25 kg

DRUGS (5)
  1. CLONAZEPAM. [Suspect]
     Active Substance: CLONAZEPAM
     Indication: INSOMNIA
     Dosage: ?          QUANTITY:1 TABLET(S);?
     Route: 048
     Dates: start: 20080101, end: 20200910
  2. VITAMIN D3 [Concomitant]
     Active Substance: CHOLECALCIFEROL
  3. VITAMIN B12 [Concomitant]
     Active Substance: CYANOCOBALAMIN
  4. CLONAZEPAM. [Suspect]
     Active Substance: CLONAZEPAM
     Indication: ANXIETY
     Dosage: ?          QUANTITY:1 TABLET(S);?
     Route: 048
     Dates: start: 20080101, end: 20200910
  5. VITAMIN C [Concomitant]
     Active Substance: ASCORBIC ACID

REACTIONS (8)
  - Depression [None]
  - Drug dependence [None]
  - Myalgia [None]
  - Insomnia [None]
  - Anxiety [None]
  - Restless legs syndrome [None]
  - Withdrawal syndrome [None]
  - Product complaint [None]

NARRATIVE: CASE EVENT DATE: 20191115
